FAERS Safety Report 20301556 (Version 1)
Quarter: 2022Q1

REPORT INFORMATION
  Report Type: Spontaneous
  Country: FR (occurrence: FR)
  Receive Date: 20220105
  Receipt Date: 20220105
  Transmission Date: 20220423
  Serious: Yes (Life-Threatening, Hospitalization, Other)
  Sender: FDA-Public Use
  Company Number: None

PATIENT
  Age: 54 Year
  Sex: Male

DRUGS (4)
  1. COMIRNATY [Suspect]
     Active Substance: TOZINAMERAN
     Indication: COVID-19 immunisation
     Dosage: DOSE 3 (BOOSTER), 0.3ML , SINGLE
     Route: 030
     Dates: start: 202107, end: 202107
  2. COMIRNATY [Suspect]
     Active Substance: TOZINAMERAN
     Dosage: DOSE 2, 0.3ML, SINGLE
     Route: 030
     Dates: start: 202105, end: 202105
  3. VAXZEVRIA [Suspect]
     Active Substance: AZD-1222
     Indication: COVID-19 immunisation
     Dosage: DOSE 1, 0.5ML, SINGLE
     Route: 030
     Dates: start: 202103, end: 202103
  4. RITUXIMAB [Suspect]
     Active Substance: RITUXIMAB
     Dosage: 1 INFUSION EVERY 6 MONTHS

REACTIONS (4)
  - Drug ineffective [Not Recovered/Not Resolved]
  - COVID-19 [Not Recovered/Not Resolved]
  - Off label use [Unknown]
  - Interchange of vaccine products [Unknown]

NARRATIVE: CASE EVENT DATE: 20210501
